FAERS Safety Report 10192570 (Version 1)
Quarter: 2014Q2

REPORT INFORMATION
  Report Type: Spontaneous
  Country: US (occurrence: US)
  Receive Date: 20140523
  Receipt Date: 20140523
  Transmission Date: 20141212
  Serious: Yes (Hospitalization, Other)
  Sender: FDA-Public Use
  Company Number: US-ELI_LILLY_AND_COMPANY-US201405003914

PATIENT
  Sex: Female

DRUGS (1)
  1. HUMALOG LISPRO [Suspect]
     Indication: TYPE 1 DIABETES MELLITUS
     Dosage: 8 U, UNKNOWN
     Route: 065

REACTIONS (7)
  - Diabetic ketoacidosis [Unknown]
  - Pain in extremity [Unknown]
  - Eye pain [Unknown]
  - Stress [Unknown]
  - Injection site pain [Unknown]
  - Drug dose omission [Unknown]
  - Medication error [Unknown]
